FAERS Safety Report 20446184 (Version 2)
Quarter: 2022Q1

REPORT INFORMATION
  Report Type: Spontaneous
  Country: GB (occurrence: GB)
  Receive Date: 20220208
  Receipt Date: 20220302
  Transmission Date: 20220423
  Serious: Yes (Disabling, Other)
  Sender: FDA-Public Use
  Company Number: GB-NOVOPROD-867782

PATIENT
  Age: 59 Year
  Sex: Female
  Weight: 115 kg

DRUGS (11)
  1. OZEMPIC [Suspect]
     Active Substance: SEMAGLUTIDE
     Indication: Type 2 diabetes mellitus
     Dosage: 0.25 MG, QW
     Route: 058
     Dates: start: 20200310, end: 20200331
  2. OZEMPIC [Suspect]
     Active Substance: SEMAGLUTIDE
     Indication: Type 2 diabetes mellitus
     Dosage: 0.5 MG, QW
     Route: 058
     Dates: start: 20200401, end: 20200721
  3. OZEMPIC [Suspect]
     Active Substance: SEMAGLUTIDE
     Indication: Type 2 diabetes mellitus
     Dosage: 1 MG, QW
     Route: 058
     Dates: start: 20200722, end: 20211117
  4. TOUJEO [Concomitant]
     Active Substance: INSULIN GLARGINE
     Dosage: 90 DAILY DOSE
     Route: 058
     Dates: start: 202003
  5. TOUJEO [Concomitant]
     Active Substance: INSULIN GLARGINE
     Dosage: 80 DAILY DOSE
     Route: 058
     Dates: start: 202004
  6. TOUJEO [Concomitant]
     Active Substance: INSULIN GLARGINE
     Indication: Type 2 diabetes mellitus
     Dosage: 100 DAILY DOSE
     Route: 058
     Dates: start: 20181123
  7. NOVORAPID [Concomitant]
     Active Substance: INSULIN ASPART
     Dosage: 170 UNITS (60 UNITS BREAKFAST/30 UNITS LUNCH/80 UNITS EVENING)
     Route: 058
     Dates: start: 202003
  8. NOVORAPID [Concomitant]
     Active Substance: INSULIN ASPART
     Indication: Type 2 diabetes mellitus
     Dosage: 44 DAILY DOSE
     Route: 058
     Dates: start: 20181123
  9. NOVORAPID [Concomitant]
     Active Substance: INSULIN ASPART
     Dosage: 190 UNITS (80 UNITS BREAKFAST/30 UNITS LUNCH/80 UNITS EVENING)
     Route: 058
     Dates: start: 202003
  10. LISINOPRIL [Concomitant]
     Active Substance: LISINOPRIL
     Indication: Product used for unknown indication
     Dosage: 5 MG, QD
     Route: 048
     Dates: start: 20161222
  11. INSULIN HUMAN [Concomitant]
     Active Substance: INSULIN HUMAN
     Dosage: VARIABLE DAILY DOSE
     Route: 058
     Dates: start: 20111101, end: 20181123

REACTIONS (3)
  - Maculopathy [Not Recovered/Not Resolved]
  - Diabetic retinopathy [Not Recovered/Not Resolved]
  - Condition aggravated [Not Recovered/Not Resolved]

NARRATIVE: CASE EVENT DATE: 20200901
